FAERS Safety Report 4530081-6 (Version None)
Quarter: 2004Q4

REPORT INFORMATION
  Report Type: 
  Country: None (occurrence: None)
  Receive Date: 20041215
  Receipt Date: 20041215
  Transmission Date: 20050328
  Serious: Yes (Life-Threatening, Hospitalization, Disabling)
  Sender: FDA-Public Use
  Company Number: None

PATIENT
  Age: 65 Year
  Sex: Male
  Weight: 104.3273 kg

DRUGS (4)
  1. REMICADE [Suspect]
     Indication: RHEUMATOID ARTHRITIS
     Dosage: MONTHLY INTRAVENOUS
     Route: 042
     Dates: start: 20040901, end: 20041107
  2. METHOTREXATE [Concomitant]
  3. PREDNISONE [Concomitant]
  4. FOLIC ACID [Concomitant]

REACTIONS (7)
  - ACUTE RESPIRATORY FAILURE [None]
  - CLOSTRIDIUM COLITIS [None]
  - DISSEMINATED CRYPTOCOCCOSIS [None]
  - FUNGAEMIA [None]
  - PNEUMONIA [None]
  - SEPSIS [None]
  - SHOCK [None]
